FAERS Safety Report 23268468 (Version 1)
Quarter: 2023Q4

REPORT INFORMATION
  Report Type: Spontaneous
  Country: US (occurrence: None)
  Receive Date: 20231206
  Receipt Date: 20231206
  Transmission Date: 20240110
  Serious: Yes (Other)
  Sender: FDA-Public Use
  Company Number: None

PATIENT
  Age: 51 Year
  Sex: Female

DRUGS (1)
  1. PRALUENT [Suspect]
     Active Substance: ALIROCUMAB
     Indication: Hyperlipidaemia
     Dosage: FREQUENCY : EVERY OTHER WEEK;?
     Route: 058
     Dates: start: 20231107, end: 20231206

REACTIONS (6)
  - Hypoglycaemia [None]
  - Injection site bruising [None]
  - Injection site reaction [None]
  - Abdominal discomfort [None]
  - Myalgia [None]
  - Therapy interrupted [None]

NARRATIVE: CASE EVENT DATE: 20231107
